FAERS Safety Report 9451132 (Version 1)
Quarter: 2013Q3

REPORT INFORMATION
  Report Type: Spontaneous
  Country: RO (occurrence: RO)
  Receive Date: 20130809
  Receipt Date: 20130809
  Transmission Date: 20140515
  Serious: Yes (Death, Congenital Anomaly)
  Sender: FDA-Public Use
  Company Number: RO-TEVA-423376ISR

PATIENT
  Sex: Female

DRUGS (2)
  1. CARBAMAZEPINE [Suspect]
     Indication: PARTIAL SEIZURES
     Dosage: .4 GRAM DAILY; 0.4 G/DAY
     Route: 064
  2. PHENOBARBITAL [Interacting]
     Indication: PARTIAL SEIZURES
     Dosage: .1 GRAM DAILY; 0.1 G/DAY
     Route: 064

REACTIONS (9)
  - Sirenomelia [Fatal]
  - Foetal exposure during pregnancy [Fatal]
  - Potentiating drug interaction [Fatal]
  - Congenital nose malformation [Not Recovered/Not Resolved]
  - Congenital anomaly [Not Recovered/Not Resolved]
  - Anomaly of external ear congenital [Not Recovered/Not Resolved]
  - Prognathism [Not Recovered/Not Resolved]
  - Brachydactyly [Not Recovered/Not Resolved]
  - Congenital eyelid malformation [Not Recovered/Not Resolved]
